FAERS Safety Report 8172396-9 (Version None)
Quarter: 2012Q1

REPORT INFORMATION
  Report Type: 
  Country: None (occurrence: None)
  Receive Date: 20120229
  Receipt Date: 20120220
  Transmission Date: 20120608
  Serious: Yes (Other)
  Sender: FDA-Public Use
  Company Number: JP-ACCORD-012544

PATIENT
  Age: 74 Year
  Sex: Female

DRUGS (4)
  1. GEMCITABINE [Suspect]
     Indication: BLADDER CANCER
  2. MENATETRENONE [Concomitant]
     Dosage: SINGLE DOSE
  3. CISPLATIN [Suspect]
     Indication: BLADDER CANCER
  4. WARFARIN SODIUM [Suspect]
     Indication: DEEP VEIN THROMBOSIS

REACTIONS (3)
  - PROTHROMBIN TIME PROLONGED [None]
  - INTERNATIONAL NORMALISED RATIO INCREASED [None]
  - OFF LABEL USE [None]
